FAERS Safety Report 9058563 (Version 2)
Quarter: 2013Q1

REPORT INFORMATION
  Report Type: Spontaneous
  Country: DE (occurrence: DE)
  Receive Date: 20130211
  Receipt Date: 20130326
  Transmission Date: 20140127
  Serious: Yes (Hospitalization)
  Sender: FDA-Public Use
  Company Number: PHHY2013DE006882

PATIENT
  Age: 74 Year
  Sex: Female

DRUGS (2)
  1. AFINITOR [Suspect]
     Indication: BREAST CANCER METASTATIC
     Dosage: 10 MG, UNK
     Route: 048
     Dates: start: 20121016, end: 20121110
  2. AFINITOR [Suspect]
     Dosage: 10 MG, QD
     Route: 048
     Dates: start: 20121116, end: 20121129

REACTIONS (15)
  - Crohn^s disease [Recovered/Resolved]
  - Swelling [Recovering/Resolving]
  - Intestinal stenosis [Recovering/Resolving]
  - Abdominal wall disorder [Recovering/Resolving]
  - Abdominal pain [Recovering/Resolving]
  - Nausea [Recovering/Resolving]
  - Vomiting [Recovering/Resolving]
  - Diarrhoea [Recovering/Resolving]
  - Abdominal pain lower [Recovering/Resolving]
  - Localised intraabdominal fluid collection [Recovering/Resolving]
  - Ascites [Recovering/Resolving]
  - Gastrointestinal inflammation [Recovering/Resolving]
  - Inflammation [Recovering/Resolving]
  - Vitello-intestinal duct remnant [Recovering/Resolving]
  - Subileus [Recovered/Resolved]
